FAERS Safety Report 11142982 (Version 1)
Quarter: 2015Q2

REPORT INFORMATION
  Report Type: Spontaneous
  Country: US (occurrence: US)
  Receive Date: 20150526
  Receipt Date: 20150526
  Transmission Date: 20150821
  Serious: Yes (Other)
  Sender: FDA-Public Use
  Company Number: US-MYLANLABS-2015M1016907

PATIENT

DRUGS (4)
  1. METHOTREXATE [Suspect]
     Active Substance: METHOTREXATE
     Indication: BREAST CANCER
     Dosage: 12 G, FIVE CYCLES
     Route: 037
     Dates: start: 201211, end: 201212
  2. ANASTROZOLE. [Concomitant]
     Active Substance: ANASTROZOLE
  3. METHOTREXATE [Suspect]
     Active Substance: METHOTREXATE
     Dosage: HIGH-DOSE SYSTEMIC 3.5 MG/M2, UNK
     Dates: start: 201212
  4. LEUCOVORIN                         /00566701/ [Concomitant]
     Active Substance: LEUCOVORIN

REACTIONS (3)
  - Drug clearance decreased [Not Recovered/Not Resolved]
  - Headache [Recovered/Resolved]
  - Bone marrow failure [Not Recovered/Not Resolved]

NARRATIVE: CASE EVENT DATE: 201212
